FAERS Safety Report 9838192 (Version 2)
Quarter: 2014Q1

REPORT INFORMATION
  Report Type: Spontaneous
  Country: US (occurrence: US)
  Receive Date: 20140123
  Receipt Date: 20140123
  Transmission Date: 20141002
  Serious: Yes (Death)
  Sender: FDA-Public Use
  Company Number: US-BRACCO-010055

PATIENT
  Sex: Male

DRUGS (1)
  1. READI-CAT [Suspect]
     Indication: GASTROINTESTINAL SCAN
     Route: 048
     Dates: start: 2013, end: 2013

REACTIONS (1)
  - Cardiac arrest [Fatal]
